FAERS Safety Report 17111708 (Version 1)
Quarter: 2019Q4

REPORT INFORMATION
  Report Type: Spontaneous
  Country: US (occurrence: US)
  Receive Date: 20191111
  Receipt Date: 20191111
  Transmission Date: 20200122
  Serious: Yes (Hospitalization)
  Sender: FDA-Public Use
  Company Number: None

PATIENT
  Age: 76 Year

DRUGS (1)
  1. ESBRIET [Suspect]
     Active Substance: PIRFENIDONE
     Indication: PULMONARY FIBROSIS
     Dosage: ?          OTHER FREQUENCY:TITRATION SCHEDULE;?
     Route: 048
     Dates: start: 20191023

REACTIONS (1)
  - Escherichia urinary tract infection [None]

NARRATIVE: CASE EVENT DATE: 201910
